FAERS Safety Report 6030761-X (Version None)
Quarter: 2009Q1

REPORT INFORMATION
  Report Type: 
  Country: None (occurrence: None)
  Receive Date: 20090107
  Receipt Date: 20081231
  Transmission Date: 20090719
  Serious: Yes (Other)
  Sender: FDA-Public Use
  Company Number: CN-PFIZER INC-2008099040

PATIENT

DRUGS (3)
  1. MEDROL [Suspect]
     Route: 048
     Dates: start: 20080801
  2. PREDNISONE [Suspect]
     Dates: start: 20080301
  3. ALL OTHER THERAPEUTIC PRODUCTS [Concomitant]

REACTIONS (4)
  - BLOOD GLUCOSE INCREASED [None]
  - GLUCOSE URINE PRESENT [None]
  - NEPHROTIC SYNDROME [None]
  - PROTEINURIA [None]
